FAERS Safety Report 18915291 (Version 1)
Quarter: 2021Q1

REPORT INFORMATION
  Report Type: Spontaneous
  Country: SK (occurrence: SK)
  Receive Date: 20210219
  Receipt Date: 20210219
  Transmission Date: 20210420
  Serious: Yes (Hospitalization, Disabling, Other)
  Sender: FDA-Public Use
  Company Number: SK-SA-2020SA352731

PATIENT
  Age: 51 Year
  Sex: Female
  Weight: 60 kg

DRUGS (12)
  1. ESCITIL [Concomitant]
  2. FRAXIPARINE [Concomitant]
     Active Substance: NADROPARIN CALCIUM
     Dosage: 0.4 ML
     Route: 058
  3. AUBAGIO [Suspect]
     Active Substance: TERIFLUNOMIDE
     Dosage: 1 DF, QD
     Route: 048
  4. AUBAGIO [Suspect]
     Active Substance: TERIFLUNOMIDE
     Dosage: 1 DF, Q3D
     Route: 048
  5. OZZION [Concomitant]
  6. AUBAGIO [Suspect]
     Active Substance: TERIFLUNOMIDE
     Indication: MULTIPLE SCLEROSIS
     Dosage: UNK
     Dates: start: 20150324, end: 20200705
  7. URSOSAN [Concomitant]
     Active Substance: URSODIOL
  8. SOLU?MEDROL [Concomitant]
     Active Substance: METHYLPREDNISOLONE SODIUM SUCCINATE
     Dosage: 3 G
  9. VIGANTOL [COLECALCIFEROL] [Concomitant]
     Active Substance: CHOLECALCIFEROL
     Dosage: 10 DROP, QD
  10. MILGAMMA [ADENOSINE PHOSPHATE;CYANOCOBALAMIN;LIDOCAINE HYDROCHLORIDE;P [Concomitant]
     Dosage: 1 DF, BID
  11. AUBAGIO [Suspect]
     Active Substance: TERIFLUNOMIDE
     Dosage: 1 DF, QD
     Route: 048
  12. NEUROL [VALERIANA OFFICINALIS EXTRACT] [Concomitant]

REACTIONS (18)
  - Gait disturbance [Unknown]
  - Paraesthesia [Unknown]
  - Multiple sclerosis [Unknown]
  - Ataxia [Unknown]
  - Demyelination [Unknown]
  - Muscular weakness [Unknown]
  - Hyperaesthesia [Unknown]
  - Panic disorder [Unknown]
  - Hepatic lesion [Unknown]
  - Multiple sclerosis relapse [Recovering/Resolving]
  - Paraparesis [Unknown]
  - Spinal osteoarthritis [Unknown]
  - Product use issue [Unknown]
  - Cholestasis [Unknown]
  - Paraparesis [Recovering/Resolving]
  - Musculoskeletal disorder [Recovering/Resolving]
  - Relapsing-remitting multiple sclerosis [Unknown]
  - Expanded disability status scale score increased [Unknown]

NARRATIVE: CASE EVENT DATE: 202004
